FAERS Safety Report 9462745 (Version 1)
Quarter: 2013Q3

REPORT INFORMATION
  Report Type: Spontaneous
  Country: GB (occurrence: None)
  Receive Date: 20130814
  Receipt Date: 20130814
  Transmission Date: 20140515
  Serious: Yes (Other)
  Sender: FDA-Public Use
  Company Number: AUR-APL-2013-06602

PATIENT
  Age: 28 Year
  Sex: Female
  Weight: 48 kg

DRUGS (7)
  1. AMOXICILLIN (AMOXICILLIN) [Suspect]
     Indication: PRODUCT USED FOR UNKNOWN INDICATION
     Dates: start: 20130726
  2. ADCAL [Concomitant]
  3. CEFALEXIN [Concomitant]
  4. CO-AMOXICLAV [Concomitant]
  5. ERYTHROMYCIN [Concomitant]
  6. NAPROXEN [Concomitant]
  7. PRO D3 [Concomitant]

REACTIONS (2)
  - Drug eruption [None]
  - Throat tightness [None]
